FAERS Safety Report 17449385 (Version 2)
Quarter: 2020Q1

REPORT INFORMATION
  Report Type: Spontaneous
  Country: US (occurrence: US)
  Receive Date: 20200224
  Receipt Date: 20200325
  Transmission Date: 20200409
  Serious: No
  Sender: FDA-Public Use
  Company Number: HU-ALLERGAN-1915996US

PATIENT
  Age: 52 Year
  Sex: Female

DRUGS (1)
  1. OXYTROL [Suspect]
     Active Substance: OXYBUTYNIN
     Indication: HYPERTONIC BLADDER

REACTIONS (2)
  - Product availability issue [Unknown]
  - Abdominal pain upper [Unknown]
